FAERS Safety Report 15191490 (Version 2)
Quarter: 2018Q4

REPORT INFORMATION
  Report Type: Report from Study
  Country: US (occurrence: US)
  Receive Date: 20180724
  Receipt Date: 20181015
  Transmission Date: 20190204
  Serious: Yes (Other)
  Sender: FDA-Public Use
  Company Number: US-AMGEN-USASL2018059869

PATIENT
  Age: 65 Year
  Sex: Female

DRUGS (1)
  1. KYPROLIS [Suspect]
     Active Substance: CARFILZOMIB
     Indication: PLASMA CELL MYELOMA
     Dosage: UNK, QMO
     Route: 042

REACTIONS (4)
  - Off label use [Unknown]
  - Neuropathy peripheral [Not Recovered/Not Resolved]
  - Cardiac disorder [Unknown]
  - Heart valve incompetence [Unknown]
